FAERS Safety Report 10566796 (Version 6)
Quarter: 2015Q1

REPORT INFORMATION
  Report Type: Spontaneous
  Country: US (occurrence: US)
  Receive Date: 20141105
  Receipt Date: 20150304
  Transmission Date: 20150720
  Serious: Yes (Disabling, Other)
  Sender: FDA-Public Use
  Company Number: US-TEVA-407093USA

PATIENT
  Age: 53 Year
  Sex: Female

DRUGS (2)
  1. LEVOFLOXACIN. [Suspect]
     Active Substance: LEVOFLOXACIN
     Indication: LUNG INFECTION
     Route: 065
     Dates: start: 201303, end: 201303
  2. LEVOFLOXACIN. [Suspect]
     Active Substance: LEVOFLOXACIN
     Indication: COUGH
     Route: 065
     Dates: start: 20130422, end: 201304

REACTIONS (17)
  - Abasia [Recovering/Resolving]
  - Movement disorder [Unknown]
  - Tendon pain [Recovered/Resolved]
  - Tendonitis [Recovering/Resolving]
  - Pain in extremity [Not Recovered/Not Resolved]
  - Gait disturbance [Recovering/Resolving]
  - Muscle strain [Recovering/Resolving]
  - Tendon rupture [Recovering/Resolving]
  - Tendon disorder [Recovering/Resolving]
  - Pain [Recovering/Resolving]
  - Back pain [Recovering/Resolving]
  - Drug hypersensitivity [Not Recovered/Not Resolved]
  - Connective tissue disorder [Recovering/Resolving]
  - Arthralgia [Recovering/Resolving]
  - Tendon injury [Recovering/Resolving]
  - Depression [Recovering/Resolving]
  - Insomnia [Recovering/Resolving]

NARRATIVE: CASE EVENT DATE: 2013
